FAERS Safety Report 4426861-8 (Version None)
Quarter: 2004Q3

REPORT INFORMATION
  Report Type: 
  Country: None (occurrence: None)
  Receive Date: 20040811
  Receipt Date: 20040729
  Transmission Date: 20050211
  Serious: Yes (Other)
  Sender: FDA-Public Use
  Company Number: 2004051811

PATIENT
  Sex: Male
  Weight: 9.2 kg

DRUGS (8)
  1. FLUCONAZOLE [Suspect]
     Indication: INFECTION
  2. MELPHALAN (MELPHALAN) [Suspect]
     Indication: STEM CELL TRANSPLANT
     Dosage: 30 MG, INTRAVENOUS
     Route: 042
  3. POLYMYXIN B SULFATE (POLYMYXIN B SULFATE) [Concomitant]
  4. AMPICLOX (AMPICILLIN, CLOXACILLIN) [Concomitant]
  5. ENOXAPARIN SODIUM [Concomitant]
  6. POTASSIUM CANRENOATE (POTASSIUM CANRENOATE) [Concomitant]
  7. MEFANAMIC ACID (MEFANAMIC ACID) [Concomitant]
  8. HYDROXYZINE HCL [Concomitant]

REACTIONS (13)
  - ABDOMINAL DISTENSION [None]
  - ASCITES [None]
  - BLOOD BILIRUBIN INCREASED [None]
  - BODY TEMPERATURE DECREASED [None]
  - DRUG INEFFECTIVE [None]
  - DYSPNOEA [None]
  - FEBRILE INFECTION [None]
  - HEPATIC VEIN OCCLUSION [None]
  - HEPATOMEGALY [None]
  - PLEURAL EFFUSION [None]
  - STOMATITIS [None]
  - URINE OUTPUT DECREASED [None]
  - WEIGHT FLUCTUATION [None]
